FAERS Safety Report 21767123 (Version 1)
Quarter: 2022Q4

REPORT INFORMATION
  Report Type: Spontaneous
  Country: GB (occurrence: GB)
  Receive Date: 20221222
  Receipt Date: 20221222
  Transmission Date: 20230113
  Serious: Yes (Life-Threatening, Hospitalization, Other)
  Sender: FDA-Public Use
  Company Number: GB-MYLANLABS-2022M1132748

PATIENT
  Age: 46 Year
  Sex: Male

DRUGS (38)
  1. LAMOTRIGINE [Suspect]
     Active Substance: LAMOTRIGINE
     Indication: Drug therapy
     Dosage: 100 MILLIGRAM DAILY; 100 MILLIGRAM, QD
     Route: 048
     Dates: end: 20221109
  2. LORAZEPAM [Suspect]
     Active Substance: LORAZEPAM
     Indication: Schizophrenia
     Dosage: 7 MILLIGRAM DAILY; 7 MILLIGRAM, QD (IN DIVIDED DOSES)
     Route: 048
  3. METFORMIN [Suspect]
     Active Substance: METFORMIN HYDROCHLORIDE
     Indication: Diabetes mellitus
     Dosage: 2 GRAM DAILY; 2 GRAM, QD
     Route: 048
  4. SIMVASTATIN [Suspect]
     Active Substance: SIMVASTATIN
     Indication: Blood cholesterol increased
     Dosage: 40 MILLIGRAM DAILY; 40 MILLIGRAM, PM
     Route: 048
     Dates: start: 2014
  5. TRAZODONE [Suspect]
     Active Substance: TRAZODONE HYDROCHLORIDE
     Indication: Antidepressant therapy
     Dosage: 150 MILLIGRAM DAILY; 150 MILLIGRAM, PM
     Route: 048
     Dates: end: 20221109
  6. CLOZARIL [Suspect]
     Active Substance: CLOZAPINE
     Indication: Schizophrenia
     Dosage: 650 MILLIGRAM ( IN DIVIDED DOSES (200/450))
     Route: 065
  7. CLOZARIL [Suspect]
     Active Substance: CLOZAPINE
     Dosage: 875 MILLIGRAM DAILY; 875 MILLIGRAM, QD, DURATION: 4056 DAYS
     Route: 048
     Dates: start: 20111003, end: 20221109
  8. CLOZARIL [Suspect]
     Active Substance: CLOZAPINE
     Dosage: 900 MILLIGRAM (900MG IN DIVIDED DOSES (325/525))
     Route: 065
  9. AMISULPRIDE [Concomitant]
     Active Substance: AMISULPRIDE
     Indication: Product used for unknown indication
     Dosage: 600 MILLIGRAM (IN DIVIDED DOSES)
     Route: 065
  10. CHLORPHENIRAMINE MALEATE [Concomitant]
     Active Substance: CHLORPHENIRAMINE MALEATE
     Indication: Seasonal allergy
     Dosage: UNK, PRN, FREQUENCY: 1
     Route: 065
  11. CLARITHROMYCIN [Concomitant]
     Active Substance: CLARITHROMYCIN
     Indication: Tooth infection
     Dosage: UNK
     Route: 065
  12. CODEINE PHOSPHATE [Concomitant]
     Active Substance: CODEINE PHOSPHATE
     Indication: Analgesic therapy
     Dosage: UNK, PRN, FREQUENCY: 1
     Route: 065
  13. CHOLECALCIFEROL [Concomitant]
     Active Substance: CHOLECALCIFEROL
     Indication: Product used for unknown indication
     Dosage: 800 IU (INTERNATIONAL UNIT) DAILY; 800 INTERNATIONAL UNIT, QD
     Route: 065
  14. FERROUS SULFATE [Concomitant]
     Active Substance: FERROUS SULFATE
     Indication: Iron deficiency anaemia
     Dosage: 200 MILLIGRAM DAILY; 200 MILLIGRAM, QD
     Route: 065
  15. FERROUS SULFATE [Concomitant]
     Active Substance: FERROUS SULFATE
     Dosage: INCREASED
     Route: 065
     Dates: start: 202208
  16. GAVISCON [Concomitant]
     Active Substance: ALUMINUM HYDROXIDE\MAGNESIUM CARBONATE
     Indication: Product used for unknown indication
     Dosage: UNK, PRN, FREQUENCY: 1
     Route: 065
  17. GLICLAZIDE [Concomitant]
     Active Substance: GLICLAZIDE
     Indication: Type 2 diabetes mellitus
     Dosage: 160 MILLIGRAM DAILY; 160 MILLIGRAM, QD
     Route: 065
     Dates: end: 201604
  18. DEXTROSE [Concomitant]
     Active Substance: DEXTROSE
     Indication: Hypoglycaemia
     Dosage: UNK, PRN, FREQUENCY: 1
     Route: 065
  19. METFORMIN HYDROCHLORIDE [Concomitant]
     Active Substance: METFORMIN HYDROCHLORIDE
     Indication: Hypoglycaemia
     Dosage: UNK, PRN, FREQUENCY: 1
     Route: 065
  20. GLYCERIN [Concomitant]
     Active Substance: GLYCERIN
     Indication: Constipation
     Dosage: UNK, PRN, FREQUENCY: 1
     Route: 065
  21. SCOPOLAMINE [Concomitant]
     Active Substance: SCOPOLAMINE
     Indication: Product used for unknown indication
     Dosage: 1 DOSAGE FORM, Q3D
     Route: 065
  22. LACTULOSE [Concomitant]
     Active Substance: LACTULOSE
     Indication: Product used for unknown indication
     Dosage: 40 ML DAILY; 40 MILLILITER, QD
     Route: 048
     Dates: start: 201902
  23. LANSOPRAZOLE [Concomitant]
     Active Substance: LANSOPRAZOLE
     Indication: Gastrooesophageal reflux disease
     Dosage: 30 MILLIGRAM DAILY; 30 MILLIGRAM, QD
     Route: 065
  24. MOVICOL [Concomitant]
     Active Substance: POLYETHYLENE GLYCOL 3350\POTASSIUM CHLORIDE\SODIUM BICARBONATE\SODIUM CHLORIDE
     Indication: Constipation
     Dosage: 2 SACHETS, PRN, FREQUENCY: 1
     Route: 048
  25. ACETAMINOPHEN [Concomitant]
     Active Substance: ACETAMINOPHEN
     Indication: Analgesic therapy
     Dosage: UNK, PRN, FREQUENCY: 1
     Route: 065
  26. CALCIUM CARBONATE\SODIUM ALGINATE\SODIUM BICARBONATE [Concomitant]
     Active Substance: CALCIUM CARBONATE\SODIUM ALGINATE\SODIUM BICARBONATE
     Indication: Gastrooesophageal reflux disease
     Dosage: UNK, PRN, FREQUENCY: 1
     Route: 065
  27. ALBUTEROL [Concomitant]
     Active Substance: ALBUTEROL
     Indication: Asthma
     Dosage: 100 MICROGRAM (1-2 PUFFS)
     Route: 065
  28. SAXAGLIPTIN [Concomitant]
     Active Substance: SAXAGLIPTIN
     Indication: Glycosylated haemoglobin increased
     Dosage: 5 MILLIGRAM DAILY; 5 MILLIGRAM, QD
     Route: 065
     Dates: start: 202001
  29. SENNA [Concomitant]
     Active Substance: SENNA LEAF\SENNOSIDES\SENNOSIDES A AND B
     Indication: Product used for unknown indication
     Dosage: 30 MILLIGRAM DAILY; 30 MILLIGRAM, QD
     Route: 048
  30. VALPROATE SODIUM [Concomitant]
     Active Substance: VALPROATE SODIUM
     Indication: Product used for unknown indication
     Dosage: 2 GRAM DAILY; 1 GRAM, BID
     Route: 065
  31. SOLIFENACIN [Concomitant]
     Active Substance: SOLIFENACIN
     Indication: Urinary incontinence
     Dosage: 5 MILLIGRAM DAILY; 5 MILLIGRAM, QD
     Route: 065
  32. SOLIFENACIN [Concomitant]
     Active Substance: SOLIFENACIN
     Indication: Urinary tract infection
     Dosage: 10 MILLIGRAM DAILY; 10 MILLIGRAM, QD
     Route: 065
     Dates: start: 202207
  33. SOLIFENACIN [Concomitant]
     Active Substance: SOLIFENACIN
     Dosage: UNK
     Route: 065
     Dates: start: 2019
  34. VENLAFAXINE [Concomitant]
     Active Substance: VENLAFAXINE HYDROCHLORIDE
     Indication: Product used for unknown indication
     Dosage: UNK
     Route: 065
  35. RANITIDINE HYDROCHLORIDE [Concomitant]
     Active Substance: RANITIDINE HYDROCHLORIDE
     Indication: Product used for unknown indication
  36. VITAMINS [Concomitant]
     Active Substance: VITAMINS
     Indication: Product used for unknown indication
  37. ENSURE COMPACT [Concomitant]
     Indication: Product used for unknown indication
  38. ENSURE [Concomitant]
     Active Substance: AMINO ACIDS\DEXTROSE\ELECTROLYTES NOS\SOYBEAN OIL\VITAMINS
     Indication: Product used for unknown indication

REACTIONS (1)
  - Volvulus [Recovered/Resolved]

NARRATIVE: CASE EVENT DATE: 20221101
